FAERS Safety Report 22206636 (Version 1)
Quarter: 2023Q2

REPORT INFORMATION
  Report Type: Spontaneous
  Country: US (occurrence: None)
  Receive Date: 20230412
  Receipt Date: 20230412
  Transmission Date: 20230722
  Serious: Yes (Hospitalization)
  Sender: FDA-Public Use
  Company Number: None

PATIENT
  Age: 62 Year
  Sex: Female
  Weight: 74.25 kg

DRUGS (5)
  1. OZEMPIC [Suspect]
     Active Substance: SEMAGLUTIDE
     Indication: Type 2 diabetes mellitus
     Dosage: OTHER QUANTITY : 1 INJECTION(S);?OTHER FREQUENCY : WEEKLY;?
     Route: 030
     Dates: start: 20230212
  2. Rotuvistatin [Concomitant]
  3. OZEMPIC [Concomitant]
     Active Substance: SEMAGLUTIDE
  4. Mulitvitamin [Concomitant]
  5. magnesium supplement daily [Concomitant]

REACTIONS (5)
  - Pain [None]
  - Vomiting [None]
  - Diarrhoea [None]
  - Dehydration [None]
  - Gallbladder disorder [None]

NARRATIVE: CASE EVENT DATE: 20230319
